FAERS Safety Report 5418746-5 (Version None)
Quarter: 2007Q3

REPORT INFORMATION
  Report Type: 
  Country: None (occurrence: None)
  Receive Date: 20070817
  Receipt Date: 20070806
  Transmission Date: 20080115
  Serious: Yes (Other)
  Sender: FDA-Public Use
  Company Number: US-PFIZER INC-2007061377

PATIENT
  Sex: Female
  Weight: 77.1 kg

DRUGS (3)
  1. EXUBERA [Suspect]
     Indication: TYPE 2 DIABETES MELLITUS
     Dates: start: 20070101, end: 20070701
  2. EXUBERA [Suspect]
  3. LISINOPRIL [Concomitant]

REACTIONS (4)
  - COUGH [None]
  - DYSPNOEA [None]
  - EXERCISE TOLERANCE DECREASED [None]
  - WHEEZING [None]
